FAERS Safety Report 4998853-1 (Version None)
Quarter: 2006Q2

REPORT INFORMATION
  Report Type: 
  Country: None (occurrence: None)
  Receive Date: 20060510
  Receipt Date: 20051021
  Transmission Date: 20061013
  Serious: Yes (Death, Other)
  Sender: FDA-Public Use
  Company Number: US-MERCK-0510USA08815

PATIENT
  Age: 31 Year
  Sex: Male
  Weight: 86 kg

DRUGS (5)
  1. VIOXX [Suspect]
     Indication: BACK PAIN
     Route: 048
     Dates: start: 19990701, end: 20020401
  2. ULTRAM [Concomitant]
     Indication: BACK PAIN
     Route: 065
  3. TYLENOL [Concomitant]
     Indication: BACK PAIN
     Route: 065
  4. FLEXERIL [Concomitant]
     Indication: BACK PAIN
     Route: 065
  5. ASPIRIN [Concomitant]
     Route: 065

REACTIONS (2)
  - DEATH [None]
  - MYOCARDIAL INFARCTION [None]
